FAERS Safety Report 5018928-0 (Version None)
Quarter: 2006Q2

REPORT INFORMATION
  Report Type: 
  Country: None (occurrence: None)
  Receive Date: 20060531
  Receipt Date: 20060517
  Transmission Date: 20061013
  Serious: Yes (Other)
  Sender: FDA-Public Use
  Company Number: US-2005-012517

PATIENT
  Age: 55 Year
  Sex: 0

DRUGS (1)
  1. REFLUDAN [Suspect]
     Dates: end: 20050626

REACTIONS (4)
  - ACTIVATED PARTIAL THROMBOPLASTIN TIME PROLONGED [None]
  - HAEMODIALYSIS [None]
  - RENAL FAILURE [None]
  - WOUND HAEMORRHAGE [None]
